FAERS Safety Report 23014077 (Version 2)
Quarter: 2023Q4

REPORT INFORMATION
  Report Type: Other
  Country: US (occurrence: None)
  Receive Date: 20231002
  Receipt Date: 20231017
  Transmission Date: 20240110
  Serious: No
  Sender: FDA-Public Use
  Company Number: US-ROCHE-3429595

PATIENT
  Age: 51 Year
  Sex: Female
  Weight: 58.112 kg

DRUGS (5)
  1. OCREVUS [Suspect]
     Active Substance: OCRELIZUMAB
     Indication: Secondary progressive multiple sclerosis
     Dosage: INFUSE 600MG INTRAVENOUSLY EVERY 6 MONTH(S), DOT: 2022-12-22, 2023-07-27,2018-06-12
     Route: 042
  2. OCREVUS [Suspect]
     Active Substance: OCRELIZUMAB
     Indication: Relapsing multiple sclerosis
  3. BACLOFEN [Concomitant]
     Active Substance: BACLOFEN
  4. MODAFINIL [Concomitant]
     Active Substance: MODAFINIL
  5. DALFAMPRIDINE [Concomitant]
     Active Substance: DALFAMPRIDINE

REACTIONS (3)
  - COVID-19 [Recovered/Resolved with Sequelae]
  - Asthenia [Unknown]
  - Gait disturbance [Not Recovered/Not Resolved]

NARRATIVE: CASE EVENT DATE: 20230801
